FAERS Safety Report 17045391 (Version 1)
Quarter: 2019Q4

REPORT INFORMATION
  Report Type: Spontaneous
  Country: CN (occurrence: CN)
  Receive Date: 20191118
  Receipt Date: 20191118
  Transmission Date: 20200122
  Serious: Yes (Hospitalization, Other)
  Sender: FDA-Public Use
  Company Number: CN-GILEAD-2019-0437988

PATIENT
  Age: 51 Year
  Sex: Female

DRUGS (2)
  1. HEPSERA [Suspect]
     Active Substance: ADEFOVIR DIPIVOXIL
     Indication: CHRONIC HEPATITIS B
     Dosage: 1 DF, QD (TABLET)
     Route: 048
     Dates: start: 20190811, end: 20190811
  2. HEPSERA [Suspect]
     Active Substance: ADEFOVIR DIPIVOXIL
     Indication: RENAL FAILURE

REACTIONS (9)
  - Renal impairment [Recovering/Resolving]
  - Renal disorder [Recovering/Resolving]
  - Renal tubular acidosis [Recovering/Resolving]
  - Blood creatinine increased [Recovering/Resolving]
  - Kidney small [Recovering/Resolving]
  - Chronic kidney disease [Recovering/Resolving]
  - Concomitant disease aggravated [Unknown]
  - Protein urine present [Recovering/Resolving]
  - Blood urine present [Recovering/Resolving]

NARRATIVE: CASE EVENT DATE: 20190813
